FAERS Safety Report 19432463 (Version 1)
Quarter: 2021Q2

REPORT INFORMATION
  Report Type: Spontaneous
  Country: CZ (occurrence: CZ)
  Receive Date: 20210617
  Receipt Date: 20210617
  Transmission Date: 20210717
  Serious: Yes (Life-Threatening, Hospitalization, Other)
  Sender: FDA-Public Use
  Company Number: CZ-ASTRAZENECA-2021A515393

PATIENT
  Sex: Female
  Weight: 80 kg

DRUGS (2)
  1. LETROX 75 [Concomitant]
     Indication: HYPOTHYROIDISM
     Dosage: 1 TABLET EVERY MORNING
     Route: 048
     Dates: start: 20050101, end: 20210523
  2. OMEPRAZOL [Suspect]
     Active Substance: OMEPRAZOLE
     Dosage: 1 TABLET IN THE MORNING
     Route: 048
     Dates: start: 20200819, end: 20200819

REACTIONS (5)
  - Pruritus [Recovered/Resolved]
  - Localised oedema [Recovered/Resolved]
  - Flushing [Recovered/Resolved]
  - Choking [Recovered/Resolved]
  - Tongue oedema [Recovered/Resolved]

NARRATIVE: CASE EVENT DATE: 20200819
